FAERS Safety Report 18303388 (Version 1)
Quarter: 2020Q3

REPORT INFORMATION
  Report Type: Report from Study
  Country: None (occurrence: CO)
  Receive Date: 20200923
  Receipt Date: 20200923
  Transmission Date: 20201103
  Serious: Yes (Other)
  Sender: FDA-Public Use
  Company Number: CO-ABBVIE-20K-036-3578501-00

PATIENT
  Age: 27 Year
  Sex: Female
  Weight: 80 kg

DRUGS (1)
  1. HUMIRA [Suspect]
     Active Substance: ADALIMUMAB
     Indication: HIDRADENITIS
     Route: 058
     Dates: start: 20200903

REACTIONS (12)
  - Depression [Recovering/Resolving]
  - Crying [Recovering/Resolving]
  - Influenza [Recovering/Resolving]
  - Malaise [Recovering/Resolving]
  - Social avoidant behaviour [Recovering/Resolving]
  - Depressed mood [Recovering/Resolving]
  - Cough [Recovering/Resolving]
  - Headache [Recovering/Resolving]
  - Insomnia [Recovering/Resolving]
  - Rhinorrhoea [Recovering/Resolving]
  - Asthenia [Recovering/Resolving]
  - Feeling of despair [Recovering/Resolving]

NARRATIVE: CASE EVENT DATE: 20200918
